FAERS Safety Report 14756258 (Version 2)
Quarter: 2018Q2

REPORT INFORMATION
  Report Type: Report from Study
  Country: AU (occurrence: AU)
  Receive Date: 20180413
  Receipt Date: 20180423
  Transmission Date: 20180711
  Serious: Yes (Hospitalization, Other)
  Sender: FDA-Public Use
  Company Number: AU-MYLANLABS-2018M1016438

PATIENT
  Age: 58 Year
  Sex: Female

DRUGS (16)
  1. SODIUM VALPROATE [Concomitant]
     Active Substance: VALPROATE SODIUM
     Dosage: 400 MG, PM
  2. MADOPAR [Concomitant]
     Active Substance: BENSERAZIDE HYDROCHLORIDE\LEVODOPA
     Indication: PRODUCT USED FOR UNKNOWN INDICATION
     Dosage: 2 DF, PM
  3. GLICLAZIDE [Concomitant]
     Active Substance: GLICLAZIDE
     Indication: PRODUCT USED FOR UNKNOWN INDICATION
     Dosage: 120 MG, AM
  4. FRUSEMIDE [Concomitant]
     Active Substance: FUROSEMIDE
     Indication: PRODUCT USED FOR UNKNOWN INDICATION
     Dosage: 40 MG, AM
  5. SITAGLIPTIN [Concomitant]
     Active Substance: SITAGLIPTIN
     Indication: PRODUCT USED FOR UNKNOWN INDICATION
     Dosage: 100 MG, AM
  6. LEVODOPA BENSERAZIDE HYDROCHLO [Concomitant]
     Indication: PRODUCT USED FOR UNKNOWN INDICATION
     Dosage: 6 DF, QD
  7. CLOZARIL [Suspect]
     Active Substance: CLOZAPINE
     Indication: SCHIZOPHRENIA
     Dosage: 200 MG, UNK
     Route: 048
     Dates: start: 20180220
  8. SODIUM VALPROATE [Concomitant]
     Active Substance: VALPROATE SODIUM
     Indication: PRODUCT USED FOR UNKNOWN INDICATION
     Dosage: 200 MG, AM
  9. CLOZARIL [Suspect]
     Active Substance: CLOZAPINE
     Dosage: 175 MG, PM
     Route: 048
     Dates: start: 201803, end: 20180308
  10. CLOZARIL [Suspect]
     Active Substance: CLOZAPINE
     Dosage: 175 MG, PM
     Route: 048
     Dates: start: 201803, end: 20180308
  11. CHOLECALCIFEROL [Concomitant]
     Active Substance: CHOLECALCIFEROL
     Indication: PRODUCT USED FOR UNKNOWN INDICATION
     Dosage: 25 ?G, AM
  12. OXAZEPAM. [Concomitant]
     Active Substance: OXAZEPAM
     Dosage: UNK UNK, PRN
  13. QUETIAPINE. [Concomitant]
     Active Substance: QUETIAPINE
     Indication: PRODUCT USED FOR UNKNOWN INDICATION
     Dosage: 150 MG, PM
  14. CLOZARIL [Suspect]
     Active Substance: CLOZAPINE
     Indication: SCHIZOPHRENIA
     Dosage: 200 MG, UNK
     Route: 048
     Dates: start: 20180220
  15. METFORMIN [Concomitant]
     Active Substance: METFORMIN HYDROCHLORIDE
     Indication: PRODUCT USED FOR UNKNOWN INDICATION
     Dosage: 1 G, BID
  16. OXAZEPAM. [Concomitant]
     Active Substance: OXAZEPAM
     Indication: PRODUCT USED FOR UNKNOWN INDICATION
     Dosage: 30 MG, BID

REACTIONS (26)
  - Malaise [Unknown]
  - Eosinophil count increased [Unknown]
  - Hypoxia [Unknown]
  - Toxicity to various agents [Unknown]
  - Red cell distribution width increased [Not Recovered/Not Resolved]
  - Neutrophil count increased [Recovered/Resolved]
  - Blood creatinine decreased [Unknown]
  - Myocarditis [Unknown]
  - Sinus tachycardia [Unknown]
  - Mean platelet volume decreased [Recovered/Resolved]
  - C-reactive protein increased [Not Recovered/Not Resolved]
  - Hyperhidrosis [Unknown]
  - Urinary sediment present [Unknown]
  - Ill-defined disorder [Unknown]
  - Oxygen saturation decreased [Unknown]
  - Monocyte count increased [Recovered/Resolved]
  - Blood prolactin increased [Unknown]
  - Glucose urine present [Unknown]
  - Pyrexia [Unknown]
  - Blood chloride decreased [Recovered/Resolved]
  - Anion gap increased [Recovered/Resolved]
  - Cough [Unknown]
  - Protein total decreased [Recovered/Resolved]
  - Blood albumin decreased [Not Recovered/Not Resolved]
  - Haemoglobin decreased [Recovered/Resolved]
  - Gamma-glutamyltransferase increased [Unknown]

NARRATIVE: CASE EVENT DATE: 201803
